FAERS Safety Report 7817288-7 (Version None)
Quarter: 2011Q4

REPORT INFORMATION
  Report Type: 
  Country: None (occurrence: None)
  Receive Date: 20111017
  Receipt Date: 20111017
  Transmission Date: 20120403
  Serious: Yes (Life-Threatening, Hospitalization, Other)
  Sender: FDA-Public Use
  Company Number: GB-PFIZER INC-2008048401

PATIENT
  Age: 46 Year
  Sex: Male
  Weight: 98 kg

DRUGS (6)
  1. HYDROCORTISONE [Concomitant]
     Indication: BLOOD CORTICOTROPHIN DECREASED
     Dosage: 15 MG, 1X/DAY
     Route: 048
     Dates: start: 20061026, end: 20090907
  2. SOMATROPIN [Suspect]
     Indication: HYPOPITUITARISM
     Dosage: 0.3 MG, 1X/DAY
     Dates: start: 20070208
  3. VALPROATE SODIUM [Concomitant]
     Dosage: 500 UG, 1X/DAY
     Route: 048
     Dates: start: 20001125
  4. SOMATROPIN [Suspect]
     Dosage: UNK
     Dates: start: 20080528, end: 20080603
  5. LEVOTHYROXINE SODIUM [Concomitant]
     Indication: PRIMARY HYPOTHYROIDISM
  6. LEVOTHYROXINE SODIUM [Concomitant]
     Indication: BLOOD THYROID STIMULATING HORMONE DECREASED
     Dosage: 25 UG, 1X/DAY
     Route: 048
     Dates: start: 20061126

REACTIONS (2)
  - OLIGODENDROGLIOMA [None]
  - NEOPLASM RECURRENCE [None]
